FAERS Safety Report 7564813-X (Version None)
Quarter: 2011Q2

REPORT INFORMATION
  Report Type: 
  Country: None (occurrence: None)
  Receive Date: 20110622
  Receipt Date: 20110207
  Transmission Date: 20111010
  Serious: Yes (Other)
  Sender: FDA-Public Use
  Company Number: US-MYLANLABS-2010S1022473

PATIENT
  Age: 81 Year
  Sex: Female
  Weight: 108.86 kg

DRUGS (2)
  1. CLOZAPINE [Suspect]
     Dates: end: 20101204
  2. CLOZAPINE [Suspect]
     Dates: start: 20101204, end: 20110101

REACTIONS (1)
  - GRANULOCYTOPENIA [None]
